FAERS Safety Report 26200693 (Version 1)
Quarter: 2025Q4

REPORT INFORMATION
  Report Type: Report from Study
  Country: US (occurrence: US)
  Receive Date: 20251226
  Receipt Date: 20251226
  Transmission Date: 20260117
  Serious: Yes (Hospitalization)
  Sender: ABBVIE
  Company Number: US-ABBVIE-6604184

PATIENT
  Age: 82 Year
  Sex: Male

DRUGS (2)
  1. SKYRIZI [Suspect]
     Active Substance: RISANKIZUMAB-RZAA
     Indication: Psoriasis
     Dosage: FORM STRENGTH: 150MG/ML, WEEK 0
     Route: 058
     Dates: start: 20251014, end: 20251014
  2. SKYRIZI [Suspect]
     Active Substance: RISANKIZUMAB-RZAA
     Dosage: FORM STRENGTH: 150MG/ML, PATIENT WAS DUE FOR WEEK 4 DOSE ON 11 NOV 2025, WEEK 4, THEN EVERY 12 WE...
     Route: 058
     Dates: start: 20251209

REACTIONS (1)
  - Ventriculo-peritoneal shunt [Unknown]

NARRATIVE: CASE EVENT DATE: 20251104
